FAERS Safety Report 9068873 (Version 1)
Quarter: 2013Q1

REPORT INFORMATION
  Report Type: Spontaneous
  Country: JP (occurrence: JP)
  Receive Date: 20130215
  Receipt Date: 20130215
  Transmission Date: 20140127
  Serious: Yes (Hospitalization, Other)
  Sender: FDA-Public Use
  Company Number: JP-ELI_LILLY_AND_COMPANY-JP201302001587

PATIENT
  Age: 94 Year
  Sex: Male

DRUGS (2)
  1. FORTEO [Suspect]
     Dosage: UNK
     Route: 058
     Dates: end: 2012
  2. FORTEO [Suspect]
     Dosage: UNK
     Route: 058

REACTIONS (2)
  - Cholecystitis [Unknown]
  - Pneumonia aspiration [Unknown]
